FAERS Safety Report 9834299 (Version 7)
Quarter: 2014Q2

REPORT INFORMATION
  Report Type: Report from Study
  Country: US (occurrence: US)
  Receive Date: 20140122
  Receipt Date: 20140623
  Transmission Date: 20141212
  Serious: Yes (Hospitalization)
  Sender: FDA-Public Use
  Company Number: US-JNJFOC-20140109590

PATIENT
  Age: 14 Year
  Sex: Male
  Weight: 55.4 kg

DRUGS (15)
  1. REMICADE [Suspect]
     Indication: CROHN^S DISEASE
     Route: 042
     Dates: start: 20131226
  2. REMICADE [Suspect]
     Indication: CROHN^S DISEASE
     Route: 042
     Dates: start: 20131210
  3. 5-ASA [Concomitant]
     Indication: CROHN^S DISEASE
     Route: 048
  4. MULTIVITAMINS WITH IRON [Concomitant]
     Route: 065
  5. POLY IRON [Concomitant]
     Route: 065
  6. ACETAMINOPHEN OXYCODONE [Concomitant]
     Route: 065
  7. BUDESONIDE [Concomitant]
     Indication: CROHN^S DISEASE
     Route: 065
  8. 6-MERCAPTOPURINE [Concomitant]
     Route: 065
  9. OMEPRAZOLE [Concomitant]
     Route: 065
  10. PANTOPRAZOLE [Concomitant]
     Route: 065
  11. POLYETHYLENE GLYCOL [Concomitant]
     Route: 065
  12. MEROPENEM [Concomitant]
     Route: 065
  13. CASPOFUNGIN [Concomitant]
     Route: 065
  14. TOTAL PARENTERAL NUTRITION [Concomitant]
     Route: 065
  15. MORPHINE [Concomitant]
     Route: 065

REACTIONS (2)
  - Abdominal abscess [Recovered/Resolved]
  - Device related infection [Recovered/Resolved]
